FAERS Safety Report 6107117-4 (Version None)
Quarter: 2009Q1

REPORT INFORMATION
  Report Type: 
  Country: None (occurrence: None)
  Receive Date: 20090305
  Receipt Date: 20090305
  Transmission Date: 20090719
  Serious: Yes (Hospitalization)
  Sender: FDA-Public Use
  Company Number: None

PATIENT
  Age: 79 Year
  Sex: Male
  Weight: 68.4932 kg

DRUGS (1)
  1. CRESTOR [Suspect]
     Indication: BLOOD CHOLESTEROL
     Dosage: 1 TABLET 1 PER/DAY ABOUT MONTH OF JUL-SEPT 08
     Dates: start: 20080701, end: 20080901

REACTIONS (2)
  - GENERAL PHYSICAL HEALTH DETERIORATION [None]
  - LUPUS-LIKE SYNDROME [None]
